FAERS Safety Report 12964556 (Version 1)
Quarter: 2016Q4

REPORT INFORMATION
  Report Type: Spontaneous
  Country: US (occurrence: US)
  Receive Date: 20161122
  Receipt Date: 20161122
  Transmission Date: 20170207
  Serious: Yes (Life-Threatening, Other)
  Sender: FDA-Public Use
  Company Number: US-PFIZER INC-2016536234

PATIENT
  Age: 5 Month
  Sex: Female
  Weight: 8 kg

DRUGS (3)
  1. SCOPOLAMINE [Concomitant]
     Active Substance: SCOPOLAMINE
     Indication: PREMEDICATION
     Dosage: 0.1 MG, UNK
  2. KETAMINE HCL [Suspect]
     Active Substance: KETAMINE HYDROCHLORIDE
     Indication: INDUCTION OF ANAESTHESIA
     Dosage: 75 MG, UNK
     Route: 030
  3. PENTOBARBITAL. [Concomitant]
     Active Substance: PENTOBARBITAL
     Indication: PREMEDICATION
     Dosage: 20 MG, UNK

REACTIONS (2)
  - Respiratory arrest [Recovered/Resolved]
  - Respiratory depression [Recovered/Resolved]
